FAERS Safety Report 8591266 (Version 2)
Quarter: 2012Q4

REPORT INFORMATION
  Report Type: Report from Study
  Country: US (occurrence: US)
  Receive Date: 20120601
  Receipt Date: 20120927
  Transmission Date: 20130627
  Serious: Yes (Hospitalization)
  Sender: FDA-Public Use
  Company Number: US-JNJFOC-20120520452

PATIENT
  Age: 16 Year
  Sex: Female
  Weight: 51.4 kg

DRUGS (6)
  1. INFLIXIMAB, RECOMBINANT [Suspect]
     Indication: COLITIS ULCERATIVE
     Route: 042
     Dates: start: 20100625, end: 20120323
  2. PREDNISONE [Concomitant]
  3. PROBIOTICS [Concomitant]
  4. IRON [Concomitant]
  5. MULTIVITAMINS [Concomitant]
  6. DIFICID [Concomitant]

REACTIONS (1)
  - Colitis ulcerative [Recovered/Resolved]
